FAERS Safety Report 5579550-0 (Version None)
Quarter: 2008Q1

REPORT INFORMATION
  Report Type: 
  Country: None (occurrence: None)
  Receive Date: 20080102
  Receipt Date: 20071227
  Transmission Date: 20080703
  Serious: Yes (Life-Threatening)
  Sender: FDA-Public Use
  Company Number: US-GENENTECH-252049

PATIENT
  Age: 60 Year
  Weight: 61 kg

DRUGS (12)
  1. BEVACIZUMAB [Suspect]
     Indication: BREAST CANCER
     Dosage: 855 MG/KG, UNK
     Route: 042
     Dates: start: 20070419, end: 20070913
  2. CYCLOPHOSPHAMIDE [Suspect]
     Indication: BREAST CANCER
     Dosage: 775 MG/M2, UNK
     Route: 042
     Dates: start: 20070419, end: 20070802
  3. DOXORUBICIN HCL [Suspect]
     Indication: BREAST CANCER
     Dosage: 116 MG/M2, UNK
     Route: 042
     Dates: start: 20070419, end: 20070802
  4. DOCETAXEL [Concomitant]
     Indication: DRUG USE FOR UNKNOWN INDICATION
  5. CALCIUM CARBONATE [Concomitant]
     Indication: DRUG USE FOR UNKNOWN INDICATION
  6. VITAMIN CAP [Concomitant]
     Indication: DRUG USE FOR UNKNOWN INDICATION
  7. DIPHENHYDRAMINE HCL [Concomitant]
     Indication: DRUG USE FOR UNKNOWN INDICATION
  8. LANSOPRAZOLE [Concomitant]
     Indication: DRUG USE FOR UNKNOWN INDICATION
  9. DEXAMETHASONE TAB [Concomitant]
     Indication: DRUG USE FOR UNKNOWN INDICATION
  10. PROCHLORPERAZINE [Concomitant]
     Indication: DRUG USE FOR UNKNOWN INDICATION
  11. NEOMYCIN/POLYMYXIN/HYDROCORTISONE [Concomitant]
     Indication: DRUG USE FOR UNKNOWN INDICATION
  12. AZITHROMYCIN [Concomitant]
     Indication: DRUG USE FOR UNKNOWN INDICATION

REACTIONS (1)
  - CARDIOMYOPATHY [None]
